FAERS Safety Report 12904284 (Version 2)
Quarter: 2016Q4

REPORT INFORMATION
  Report Type: Spontaneous
  Country: US (occurrence: US)
  Receive Date: 20161102
  Receipt Date: 20161107
  Transmission Date: 20170207
  Serious: Yes (Hospitalization)
  Sender: FDA-Public Use
  Company Number: US-DSJP-DSU-2016-126667

PATIENT

DRUGS (2)
  1. BENICAR HCT [Suspect]
     Active Substance: HYDROCHLOROTHIAZIDE\OLMESARTAN MEDOXOMIL
     Indication: PRODUCT USED FOR UNKNOWN INDICATION
     Dosage: 40/12.5 MG, UNK
  2. BENICAR [Suspect]
     Active Substance: OLMESARTAN MEDOXOMIL
     Indication: HYPERTENSION
     Dosage: 40 MG, UNK
     Dates: start: 200402, end: 200406

REACTIONS (4)
  - Malabsorption [Not Recovered/Not Resolved]
  - Gastrooesophageal reflux disease [Unknown]
  - Hepatic enzyme increased [Not Recovered/Not Resolved]
  - Pancreatitis acute [Unknown]

NARRATIVE: CASE EVENT DATE: 200406
